FAERS Safety Report 6964729-3 (Version None)
Quarter: 2010Q3

REPORT INFORMATION
  Report Type: 
  Country: None (occurrence: None)
  Receive Date: 20100903
  Receipt Date: 20100824
  Transmission Date: 20110219
  Serious: Yes (Hospitalization)
  Sender: FDA-Public Use
  Company Number: CA-JNJFOC-20100808461

PATIENT
  Sex: Male
  Weight: 78.6 kg

DRUGS (6)
  1. REMICADE [Suspect]
     Indication: CROHN'S DISEASE
     Dosage: 15TH DOSE
     Route: 042
  2. REMICADE [Suspect]
     Route: 042
  3. EFFEXOR [Concomitant]
  4. TYLENOL W/ CODEINE NO. 3 [Concomitant]
  5. CALCIUM WITH VITAMIN D [Concomitant]
  6. METFORMIN [Concomitant]

REACTIONS (2)
  - BIOPSY LIVER [None]
  - NEPHROLITHIASIS [None]
